FAERS Safety Report 9891927 (Version 1)
Quarter: 2014Q1

REPORT INFORMATION
  Report Type: Spontaneous
  Country: GB (occurrence: GB)
  Receive Date: 20140212
  Receipt Date: 20140212
  Transmission Date: 20141002
  Serious: Yes (Hospitalization, Other)
  Sender: FDA-Public Use
  Company Number: GB-GILEAD-2014-0094212

PATIENT
  Age: 51 Year
  Sex: Male
  Weight: 88.44 kg

DRUGS (9)
  1. ATRIPLA [Suspect]
     Indication: HIV INFECTION
     Dosage: 1 DF, QD
     Route: 048
  2. TRUVADA [Suspect]
     Dosage: UNK
     Route: 065
     Dates: start: 2009
  3. SUSTIVA [Suspect]
     Dosage: UNK
     Route: 065
     Dates: start: 2009
  4. ASPIRIN [Concomitant]
     Indication: CORONARY ARTERY DISEASE
     Dosage: UNK
     Route: 065
     Dates: start: 20131002
  5. BISOPROLOL [Concomitant]
     Indication: CORONARY ARTERY DISEASE
     Dosage: 2.5 MG, QD
     Route: 048
     Dates: start: 20131002
  6. ATORVASTATIN [Concomitant]
     Indication: CORONARY ARTERY DISEASE
     Dosage: 80 MG, QD
     Route: 048
     Dates: start: 20131002
  7. PERINDOPRIL [Concomitant]
     Indication: CORONARY ARTERY DISEASE
     Dosage: 2 MG, QD
     Route: 048
     Dates: start: 20131002
  8. CLOPIDOGREL [Concomitant]
     Indication: CORONARY ARTERY DISEASE
     Dosage: 75 MG, QD
     Route: 048
     Dates: start: 20131002
  9. RANITIDINE [Concomitant]
     Indication: POSTOPERATIVE CARE

REACTIONS (5)
  - Coronary artery disease [Unknown]
  - Coronary artery occlusion [Unknown]
  - Chest pain [Unknown]
  - Dizziness [Recovered/Resolved]
  - Diarrhoea [Recovered/Resolved]
